FAERS Safety Report 14861409 (Version 1)
Quarter: 2018Q2

REPORT INFORMATION
  Report Type: Report from Study
  Country: None (occurrence: US)
  Receive Date: 20180508
  Receipt Date: 20180508
  Transmission Date: 20180711
  Serious: Yes (Other)
  Sender: FDA-Public Use
  Company Number: US-ABBVIE-18K-163-2345965-00

PATIENT
  Sex: Female

DRUGS (1)
  1. HUMIRA [Suspect]
     Active Substance: ADALIMUMAB
     Indication: PSORIATIC ARTHROPATHY
     Route: 058
     Dates: start: 20171017

REACTIONS (6)
  - Oral candidiasis [Unknown]
  - Oedema peripheral [Unknown]
  - Antinuclear antibody positive [Unknown]
  - Increased tendency to bruise [Unknown]
  - Systemic lupus erythematosus [Unknown]
  - Haemorrhagic diathesis [Unknown]
